FAERS Safety Report 10009179 (Version 2)
Quarter: 2014Q1

REPORT INFORMATION
  Report Type: Spontaneous
  Country: US (occurrence: US)
  Receive Date: 20140313
  Receipt Date: 20140313
  Transmission Date: 20141002
  Serious: No
  Sender: FDA-Public Use
  Company Number: US-GILEAD-2013-0072930

PATIENT
  Age: 72 Year
  Sex: Male

DRUGS (2)
  1. LETAIRIS [Suspect]
     Indication: PULMONARY ARTERIAL HYPERTENSION
     Dosage: 5 MG, UNK
     Route: 048
     Dates: start: 20130212, end: 20130326
  2. LETAIRIS [Suspect]
     Dosage: 10 MG, UNK
     Route: 048

REACTIONS (6)
  - Halo vision [Recovered/Resolved]
  - Visual impairment [Not Recovered/Not Resolved]
  - Tremor [Recovered/Resolved]
  - Activities of daily living impaired [Recovered/Resolved]
  - Decreased appetite [Recovered/Resolved]
  - Local swelling [Recovered/Resolved]
